FAERS Safety Report 18762073 (Version 1)
Quarter: 2021Q1

REPORT INFORMATION
  Report Type: Spontaneous
  Country: US (occurrence: US)
  Receive Date: 20210119
  Receipt Date: 20210119
  Transmission Date: 20210419
  Serious: No
  Sender: FDA-Public Use
  Company Number: None

PATIENT
  Age: 75 Year
  Sex: Female
  Weight: 105.84 kg

DRUGS (22)
  1. CYMBALTA [Concomitant]
     Active Substance: DULOXETINE HYDROCHLORIDE
  2. ASPIRIN 81MG [Concomitant]
     Active Substance: ASPIRIN
  3. ATORVASTATIN 10MG [Concomitant]
     Active Substance: ATORVASTATIN
  4. CETIRIZINE [Concomitant]
     Active Substance: CETIRIZINE HYDROCHLORIDE
  5. ACETAMINOPHEN ES 500MG [Concomitant]
  6. MAG?OXIDE 200MG [Concomitant]
  7. AMLODIPINE [Concomitant]
     Active Substance: AMLODIPINE BESYLATE
  8. MONTELUKAST [Concomitant]
     Active Substance: MONTELUKAST SODIUM
  9. RHINOCORT ALLERGY 32MCG/ACT [Concomitant]
  10. TRAZODONE [Concomitant]
     Active Substance: TRAZODONE HYDROCHLORIDE
  11. HYDROCODONE?APAP 10?325MG [Concomitant]
  12. PROLIA [Concomitant]
     Active Substance: DENOSUMAB
  13. RITUXAN [Concomitant]
     Active Substance: RITUXIMAB
  14. SYNTHROID [Concomitant]
     Active Substance: LEVOTHYROXINE SODIUM
  15. DIPHENHYDRAMINE 25MG [Concomitant]
     Active Substance: DIPHENHYDRAMINE
  16. DULERA 100?5 MCG/ACT [Concomitant]
  17. VITAMIN D 2000 UNITS [Concomitant]
  18. IBRANCE [Suspect]
     Active Substance: PALBOCICLIB
     Indication: BREAST CANCER
     Route: 048
     Dates: start: 20201201, end: 20210119
  19. CROMOLYN SODIUM 4% [Concomitant]
  20. MUCINEX DM 60?1200MG [Concomitant]
  21. VITAMIN B12 1000MCG [Concomitant]
  22. BUMETANIDE 1MG [Concomitant]
     Active Substance: BUMETANIDE

REACTIONS (1)
  - Dyspnoea [None]

NARRATIVE: CASE EVENT DATE: 20210119
